FAERS Safety Report 7277211-3 (Version None)
Quarter: 2011Q1

REPORT INFORMATION
  Report Type: 
  Country: None (occurrence: None)
  Receive Date: 20110131
  Receipt Date: 20110117
  Transmission Date: 20110831
  Serious: Yes (Death, Hospitalization)
  Sender: FDA-Public Use
  Company Number: 2011000308

PATIENT
  Age: 56 Year
  Sex: Female

DRUGS (4)
  1. AMLODIPINE [Concomitant]
  2. APO-METOPROLOL (METOPROLOL TARTRATE) [Concomitant]
  3. ATENOL (ATENOLOL) [Concomitant]
  4. ERLOTINIB HYDROCHLORIDE [Suspect]
     Indication: NON-SMALL CELL LUNG CANCER
     Dosage: (150 MG,QD),ORAL
     Route: 048
     Dates: start: 20100416, end: 20101220

REACTIONS (1)
  - PNEUMONIA [None]
